FAERS Safety Report 14951516 (Version 3)
Quarter: 2018Q2

REPORT INFORMATION
  Report Type: Spontaneous
  Country: NL (occurrence: NL)
  Receive Date: 20180530
  Receipt Date: 20180605
  Transmission Date: 20180711
  Serious: Yes (Other)
  Sender: FDA-Public Use
  Company Number: NL-PFIZER INC-2018213945

PATIENT
  Age: 21 Year
  Sex: Male

DRUGS (5)
  1. MITOXANTRONE [Suspect]
     Active Substance: MITOXANTRONE HYDROCHLORIDE
     Indication: T-CELL TYPE ACUTE LEUKAEMIA
     Dosage: UNK (CONSOLIDATION CHEMOTHERAPY)
  2. DASATINIB. [Suspect]
     Active Substance: DASATINIB
     Indication: T-CELL TYPE ACUTE LEUKAEMIA
     Dosage: 70 MG, TWICE DAILY (0.5 DAILY)
  3. CYTARABINE. [Suspect]
     Active Substance: CYTARABINE
     Indication: T-CELL TYPE ACUTE LEUKAEMIA
     Dosage: UNK (CONSOLIDATION CHEMOTHERAPY)
  4. METHOTREXATE. [Suspect]
     Active Substance: METHOTREXATE
     Indication: T-CELL TYPE ACUTE LEUKAEMIA
     Dosage: UNK (HIGH DOSE; CONSOLIDATION CHEMOTHERAPY)
  5. ASPARAGINASE [Suspect]
     Active Substance: ASPARAGINASE
     Indication: T-CELL TYPE ACUTE LEUKAEMIA
     Dosage: UNK (CONSOLIDATION CHEMOTHERAPY)

REACTIONS (2)
  - Febrile neutropenia [Recovering/Resolving]
  - Mucosal inflammation [Recovered/Resolved]
